FAERS Safety Report 10155910 (Version 1)
Quarter: 2014Q2

REPORT INFORMATION
  Report Type: Report from Study
  Country: US (occurrence: US)
  Receive Date: 20140506
  Receipt Date: 20140506
  Transmission Date: 20141212
  Serious: Yes (Hospitalization, Other)
  Sender: FDA-Public Use
  Company Number: PHEH2014US008805

PATIENT
  Age: 32 Year
  Sex: Female
  Weight: 85 kg

DRUGS (18)
  1. TOBI PODHALER [Suspect]
     Indication: CYSTIC FIBROSIS
     Dosage: 112 MG, TWICE A DAY
     Route: 055
     Dates: start: 201308
  2. TOBI PODHALER [Suspect]
     Indication: LUNG DISORDER
     Dosage: 112 MG, TWICE A DAY
     Route: 055
     Dates: start: 201310, end: 201310
  3. PROGRAF [Concomitant]
     Dosage: UNK UKN, UNK
  4. PREDNISONE [Concomitant]
     Dosage: UNK UKN, UNK
  5. BACTRIM [Concomitant]
     Dosage: UNK UKN, UNK
  6. METOPROLOL [Concomitant]
     Dosage: UNK UKN, UNK
  7. CADURAT [Concomitant]
     Dosage: UNK UKN, UNK
  8. ALLEGRA [Concomitant]
     Dosage: UNK UKN, UNK
  9. NEXIUM 1-2-3 [Concomitant]
     Dosage: UNK UKN, UNK
  10. VALCYTE [Concomitant]
     Dosage: UNK UKN, UNK
  11. CALCIUM CARBONATE [Concomitant]
     Dosage: UNK UKN, UNK
  12. AMITRIPTYLENE [Concomitant]
     Dosage: UNK UKN, UNK
  13. WARFARIN [Concomitant]
     Dosage: UNK UKN, UNK
  14. PERTZYE [Concomitant]
     Dosage: UNK UKN, UNK
  15. VITAMIN D3 [Concomitant]
     Dosage: UNK UKN, UNK
  16. MUCINEX [Concomitant]
     Dosage: UNK UKN, UNK
  17. INSULIN [Concomitant]
     Dosage: UNK UKN, UNK
     Route: 065
  18. XOPENEX [Concomitant]
     Dosage: UNK UKN, UNK

REACTIONS (5)
  - Upper-airway cough syndrome [Recovered/Resolved]
  - Aphonia [Recovered/Resolved]
  - Cough [Recovered/Resolved]
  - Wheezing [Recovered/Resolved]
  - Throat irritation [Recovered/Resolved]
